FAERS Safety Report 7360462-7 (Version None)
Quarter: 2011Q1

REPORT INFORMATION
  Report Type: 
  Country: None (occurrence: None)
  Receive Date: 20110318
  Receipt Date: 20110307
  Transmission Date: 20110831
  Serious: Yes (Other)
  Sender: FDA-Public Use
  Company Number: US-JNJFOC-20110304482

PATIENT
  Sex: Female
  Weight: 48.54 kg

DRUGS (1)
  1. INVEGA SUSTENNA [Suspect]
     Indication: ANXIETY
     Route: 030

REACTIONS (1)
  - AMNESIA [None]
